FAERS Safety Report 12981409 (Version 8)
Quarter: 2017Q4

REPORT INFORMATION
  Report Type: Report from Study
  Country: IT (occurrence: IT)
  Receive Date: 20161129
  Receipt Date: 20171207
  Transmission Date: 20180320
  Serious: Yes (Other)
  Sender: FDA-Public Use
  Company Number: IT-ROCHE-1860160

PATIENT
  Age: 65 Year
  Sex: Female

DRUGS (8)
  1. VEMURAFENIB. [Suspect]
     Active Substance: VEMURAFENIB
     Indication: MALIGNANT MELANOMA
     Route: 048
     Dates: start: 20161021, end: 20161114
  2. VEMURAFENIB. [Suspect]
     Active Substance: VEMURAFENIB
     Dosage: 240 MG - FILM-COATED TABLET
     Route: 048
     Dates: start: 20161213, end: 20170317
  3. COBIMETINIB. [Suspect]
     Active Substance: COBIMETINIB
     Route: 048
     Dates: start: 20170331, end: 20171116
  4. VEMURAFENIB. [Suspect]
     Active Substance: VEMURAFENIB
     Dosage: 240 MG - FILM-COATED TABLET
     Route: 048
     Dates: end: 20170317
  5. COBIMETINIB. [Suspect]
     Active Substance: COBIMETINIB
     Indication: MALIGNANT MELANOMA
     Dosage: 20 MG - FILM-COATED TABLET
     Route: 048
     Dates: start: 20161028, end: 20161114
  6. SUPRADYN [Concomitant]
     Active Substance: ASCORBIC ACID\MINERALS\VITAMINS
     Indication: MALIGNANT MELANOMA
     Route: 048
     Dates: start: 20161111, end: 20161124
  7. VEMURAFENIB. [Suspect]
     Active Substance: VEMURAFENIB
     Route: 048
     Dates: start: 20170331, end: 20171116
  8. COBIMETINIB. [Suspect]
     Active Substance: COBIMETINIB
     Dosage: 20 MG - FILM-COATED TABLET
     Route: 048
     Dates: end: 20170317

REACTIONS (5)
  - Electrocardiogram T wave inversion [Recovered/Resolved]
  - Erythema [Recovered/Resolved]
  - Electrocardiogram QT prolonged [Recovered/Resolved]
  - Electrocardiogram QT prolonged [Recovered/Resolved]
  - Hypermagnesaemia [Recovered/Resolved]

NARRATIVE: CASE EVENT DATE: 20161111
